FAERS Safety Report 18536276 (Version 1)
Quarter: 2020Q4

REPORT INFORMATION
  Report Type: Spontaneous
  Country: JP (occurrence: JP)
  Receive Date: 20201124
  Receipt Date: 20201124
  Transmission Date: 20210114
  Serious: Yes (Other)
  Sender: FDA-Public Use
  Company Number: JP-ROCHE-2716689

PATIENT
  Age: 57 Year
  Sex: Female

DRUGS (3)
  1. HERCEPTIN [Suspect]
     Active Substance: TRASTUZUMAB
     Indication: PRODUCT USED FOR UNKNOWN INDICATION
     Dosage: DOSAGE IS UNCERTAIN.
     Route: 041
  2. PERJETA [Suspect]
     Active Substance: PERTUZUMAB
     Indication: PRODUCT USED FOR UNKNOWN INDICATION
     Dosage: DOSAGE IS UNCERTAIN.
     Route: 041
  3. DOCETAXEL. [Concomitant]
     Active Substance: DOCETAXEL
     Dosage: DOSAGE IS UNCERTAIN.
     Route: 041

REACTIONS (2)
  - Constipation [Unknown]
  - Hypokalaemia [Unknown]
